FAERS Safety Report 14503800 (Version 1)
Quarter: 2018Q1

REPORT INFORMATION
  Report Type: Spontaneous
  Country: US (occurrence: US)
  Receive Date: 20180208
  Receipt Date: 20180208
  Transmission Date: 20180509
  Serious: No
  Sender: FDA-Public Use
  Company Number: US-JNJFOC-20180112661

PATIENT
  Age: 37 Year
  Sex: Female
  Weight: 38 kg

DRUGS (14)
  1. CETIRIZINE [Concomitant]
     Active Substance: CETIRIZINE HYDROCHLORIDE
  2. CHOLECALCIFEROL [Concomitant]
     Active Substance: CHOLECALCIFEROL
  3. SINGULAIR [Concomitant]
     Active Substance: MONTELUKAST SODIUM
  4. HYDROCORTISONE. [Concomitant]
     Active Substance: HYDROCORTISONE
  5. IMBRUVICA [Suspect]
     Active Substance: IBRUTINIB
     Indication: CHRONIC MYELOID LEUKAEMIA
     Route: 048
     Dates: start: 20170927
  6. FLONASE [Concomitant]
     Active Substance: FLUTICASONE PROPIONATE
  7. MYCOPHENOLATE [Concomitant]
     Active Substance: MYCOPHENOLIC ACID
  8. MAGNESIUM OXIDE. [Concomitant]
     Active Substance: MAGNESIUM OXIDE
  9. POTASSIUM [Concomitant]
     Active Substance: POTASSIUM
  10. TACROLIMUS. [Concomitant]
     Active Substance: TACROLIMUS
  11. ACYCLOVIR. [Concomitant]
     Active Substance: ACYCLOVIR
  12. DAPSONE. [Concomitant]
     Active Substance: DAPSONE
  13. PREDNISONE. [Concomitant]
     Active Substance: PREDNISONE
  14. VORICONAZOLE. [Concomitant]
     Active Substance: VORICONAZOLE

REACTIONS (3)
  - Product use in unapproved indication [Unknown]
  - Drug dose omission [Unknown]
  - Off label use [Unknown]

NARRATIVE: CASE EVENT DATE: 20170927
